FAERS Safety Report 19883664 (Version 1)
Quarter: 2021Q3

REPORT INFORMATION
  Report Type: Spontaneous
  Country: US (occurrence: US)
  Receive Date: 20210923
  Receipt Date: 20210923
  Transmission Date: 20211014
  Serious: No
  Sender: FDA-Public Use
  Company Number: None

PATIENT
  Age: 73 Year
  Sex: Male
  Weight: 102.51 kg

DRUGS (1)
  1. ISONIAZID. [Suspect]
     Active Substance: ISONIAZID
     Indication: MYCOBACTERIUM TUBERCULOSIS COMPLEX TEST POSITIVE
     Route: 048
     Dates: start: 20210512, end: 20210609

REACTIONS (6)
  - Transient ischaemic attack [None]
  - Tardive dyskinesia [None]
  - Myoclonus [None]
  - Confusional state [None]
  - Headache [None]
  - Cerebrovascular accident [None]

NARRATIVE: CASE EVENT DATE: 20210607
